FAERS Safety Report 6637289-4 (Version None)
Quarter: 2010Q1

REPORT INFORMATION
  Report Type: 
  Country: None (occurrence: None)
  Receive Date: 20100316
  Receipt Date: 20100125
  Transmission Date: 20100710
  Serious: No
  Sender: FDA-Public Use
  Company Number: US-ABBOTT-10P-163-0622817-00

PATIENT

DRUGS (3)
  1. TRILIPIX [Suspect]
     Indication: BLOOD TRIGLYCERIDES INCREASED
     Route: 048
  2. TRICOR [Concomitant]
     Indication: BLOOD TRIGLYCERIDES INCREASED
  3. UNKNOWN OTHER DIABETIC MEDICATION [Concomitant]
     Indication: DIABETES MELLITUS

REACTIONS (2)
  - BLOOD CREATINE PHOSPHOKINASE INCREASED [None]
  - GLOMERULAR FILTRATION RATE DECREASED [None]
